FAERS Safety Report 8496691-9 (Version None)
Quarter: 2012Q3

REPORT INFORMATION
  Report Type: 
  Country: None (occurrence: None)
  Receive Date: 20120709
  Receipt Date: 20120702
  Transmission Date: 20120928
  Serious: Yes (Death)
  Sender: FDA-Public Use
  Company Number: ES-GENZYME-THYM-1003315

PATIENT
  Age: 49 Year
  Sex: Female
  Weight: 68 kg

DRUGS (4)
  1. TREOSULFAN [Suspect]
     Indication: BONE MARROW CONDITIONING REGIMEN
     Dosage: 23.8 G, UNK
     Route: 042
     Dates: start: 20111129, end: 20111202
  2. FLUDARA [Suspect]
     Indication: BONE MARROW CONDITIONING REGIMEN
     Dosage: 51 MG, QD
     Route: 042
     Dates: start: 20111129, end: 20111203
  3. TACROLIMUS [Suspect]
     Indication: PROPHYLAXIS AGAINST TRANSPLANT REJECTION
     Dosage: UNK
     Route: 065
     Dates: start: 20111209, end: 20120216
  4. THYMOGLOBULIN [Suspect]
     Indication: PROPHYLAXIS AGAINST TRANSPLANT REJECTION
     Dosage: 170 MG, QD
     Route: 042
     Dates: start: 20111203, end: 20111205

REACTIONS (2)
  - LYMPHOPROLIFERATIVE DISORDER [None]
  - MULTI-ORGAN FAILURE [None]
